FAERS Safety Report 4903649-2 (Version None)
Quarter: 2006Q1

REPORT INFORMATION
  Report Type: 
  Country: None (occurrence: None)
  Receive Date: 20060203
  Receipt Date: 20060121
  Transmission Date: 20060701
  Serious: Yes (Hospitalization, Other)
  Sender: FDA-Public Use
  Company Number: 2005157762

PATIENT
  Sex: Male
  Weight: 80.7403 kg

DRUGS (13)
  1. CELEBREX [Suspect]
     Indication: OSTEOARTHRITIS
     Dosage: 100 MG
     Dates: start: 19990101, end: 20050101
  2. ARTHROTEC [Suspect]
     Indication: OSTEOARTHRITIS
  3. BEXTRA [Suspect]
     Indication: OSTEOARTHRITIS
     Dosage: 20 MG (20 MG, 1 IN 1 D)
  4. THALLIUM (201 TL) (THALLIUM (201 TL)) [Suspect]
     Indication: CARDIAC STRESS TEST
  5. TAMSULOSIN HCL [Concomitant]
  6. PAXIL [Concomitant]
  7. CLONAZEPAM [Concomitant]
  8. ALTACE [Concomitant]
  9. PRAVACHOL [Concomitant]
  10. CITRUCEL (METHYLCELLULOSE) [Concomitant]
  11. FISH OIL (FISH OIL) [Concomitant]
  12. CENTRUM SILVER (ASCORBIC ACID, CALCIUM, MINERALS NOS, RETINOL, TOCOPHE [Concomitant]
  13. PREVACID [Concomitant]

REACTIONS (11)
  - CONDITION AGGRAVATED [None]
  - DRUG EFFECT DECREASED [None]
  - DRUG INEFFECTIVE [None]
  - GAIT DISTURBANCE [None]
  - GASTRIC DISORDER [None]
  - MOBILITY DECREASED [None]
  - OSTEOPOROSIS [None]
  - PAIN [None]
  - RASH [None]
  - URTICARIA [None]
  - WALKING AID USER [None]
